FAERS Safety Report 23240218 (Version 1)
Quarter: 2023Q4

REPORT INFORMATION
  Report Type: Spontaneous
  Country: US (occurrence: None)
  Receive Date: 20231128
  Receipt Date: 20231128
  Transmission Date: 20240110
  Serious: No
  Sender: FDA-Public Use
  Company Number: None

PATIENT
  Age: 61 Year
  Sex: Female

DRUGS (2)
  1. BUPIVACAINE [Suspect]
     Active Substance: BUPIVACAINE
     Indication: Spinal osteoarthritis
     Dosage: FREQUENCY : ONCE;?OTHER ROUTE : INFILTRATION;?
     Route: 050
     Dates: end: 20230809
  2. Dexamethasone Sodium Phos Injection [Concomitant]
     Dates: end: 20230809

REACTIONS (2)
  - Hypoaesthesia oral [None]
  - Dysgeusia [None]

NARRATIVE: CASE EVENT DATE: 20230809
